FAERS Safety Report 7692115-X (Version None)
Quarter: 2011Q3

REPORT INFORMATION
  Report Type: 
  Country: None (occurrence: None)
  Receive Date: 20110818
  Receipt Date: 20110816
  Transmission Date: 20111222
  Serious: Yes (Other)
  Sender: FDA-Public Use
  Company Number: US-PFIZER INC-2011158492

PATIENT
  Sex: Male

DRUGS (1)
  1. CHANTIX [Suspect]
     Dosage: UNK
     Dates: start: 20110607

REACTIONS (6)
  - AMNESIA [None]
  - AFFECTIVE DISORDER [None]
  - DYSPNOEA [None]
  - PARANOIA [None]
  - CONFUSIONAL STATE [None]
  - THINKING ABNORMAL [None]
